FAERS Safety Report 8813594 (Version 3)
Quarter: 2012Q4

REPORT INFORMATION
  Report Type: 
  Country: IT (occurrence: IT)
  Receive Date: 20120927
  Receipt Date: 20121102
  Transmission Date: 20130627
  Serious: Yes (Hospitalization)
  Sender: FDA-Public Use
  Company Number: IT-BRISTOL-MYERS SQUIBB COMPANY-16980948

PATIENT
  Age: 69 Year
  Sex: Male

DRUGS (5)
  1. REYATAZ CAPS 300 MG [Suspect]
     Indication: HIV INFECTION
     Route: 048
     Dates: start: 20091022, end: 20120913
  2. COUMADIN TABS 5 MG [Suspect]
  3. TRUVADA [Suspect]
     Indication: HIV INFECTION
     Dosage: tab,1DF: 200mg/245mg
     Route: 048
     Dates: start: 20091022, end: 20120913
  4. NORVIR [Suspect]
     Indication: HIV INFECTION
     Dosage: tabs
     Route: 048
     Dates: start: 20091022, end: 20120913
  5. RAMIPRIL [Concomitant]
     Indication: HYPERTENSION

REACTIONS (1)
  - Renal failure acute [Recovering/Resolving]
